FAERS Safety Report 7534434-3 (Version None)
Quarter: 2011Q2

REPORT INFORMATION
  Report Type: 
  Country: None (occurrence: None)
  Receive Date: 20110608
  Receipt Date: 20110527
  Transmission Date: 20111010
  Serious: Yes (Other)
  Sender: FDA-Public Use
  Company Number: DE-UCBSA-034194

PATIENT
  Age: 65 Year
  Sex: Female

DRUGS (3)
  1. PRAMIPEXOLE DIHYCHLLORIDE [Concomitant]
  2. ACELECT [Concomitant]
  3. NEUPRO [Suspect]
     Indication: PARKINSON'S DISEASE
     Route: 062
     Dates: start: 20110301

REACTIONS (2)
  - DYSPNOEA [None]
  - RESPIRATORY DISTRESS [None]
